FAERS Safety Report 21565283 (Version 1)
Quarter: 2022Q4

REPORT INFORMATION
  Report Type: Spontaneous
  Country: US (occurrence: US)
  Receive Date: 20221108
  Receipt Date: 20221108
  Transmission Date: 20230113
  Serious: No
  Sender: FDA-Public Use
  Company Number: US-OYSTER POINT PHARMA, INC.-2022OYS00754

PATIENT
  Age: 91 Year
  Sex: Female
  Weight: 58.957 kg

DRUGS (2)
  1. TYRVAYA [Suspect]
     Active Substance: VARENICLINE TARTRATE
     Indication: Dry eye
     Dosage: 1 SPRAY IN EACH NOSTRIL, 2X/DAY
     Route: 045
     Dates: start: 20220718
  2. SODIUM FLUORIDE\SODIUM MONOFLUOROPHOSPHATE [Suspect]
     Active Substance: SODIUM FLUORIDE\SODIUM MONOFLUOROPHOSPHATE
     Indication: Dry mouth
     Dosage: UNK UNK, QD
     Route: 048

REACTIONS (4)
  - Dry mouth [Unknown]
  - Poor quality sleep [Unknown]
  - Drug interaction [Not Recovered/Not Resolved]
  - Sneezing [Recovering/Resolving]

NARRATIVE: CASE EVENT DATE: 20220718
